FAERS Safety Report 7372087-8 (Version None)
Quarter: 2011Q1

REPORT INFORMATION
  Report Type: 
  Country: None (occurrence: None)
  Receive Date: 20110324
  Receipt Date: 20110317
  Transmission Date: 20110831
  Serious: Yes (Death)
  Sender: FDA-Public Use
  Company Number: US-ROCHE-766946

PATIENT
  Age: 76 Year
  Sex: Female

DRUGS (7)
  1. LOTENSIN [Suspect]
     Dosage: ROUTE: INGESTION, ONGOING STATUS UNKNOWN AT THE TIME OF DEATH
     Route: 048
  2. CLONAZEPAM [Suspect]
     Dosage: ROUTE: INGESTION, ONGOING STATUS UNKNOWN AT THE TIME OF DEATH
     Route: 048
  3. QUETIAPINE [Suspect]
     Dosage: ROUTE: INGESTION, ONGOING STATUS UNKNOWN AT THE TIME OF DEATH
     Route: 048
  4. ISRADIPINE [Suspect]
     Dosage: ROUTE: INGESTION, ONGOING STATUS UNKNOWN AT THE TIME OF DEATH
     Route: 048
  5. VALPROIC ACID [Suspect]
     Dosage: ROUTE: INGESTION, ONGOING STATUS UNKNOWN AT THE TIME OF DEATH
     Route: 048
  6. METOPROLOL [Suspect]
     Dosage: ROUTE: INGESTION, ONGOING STATUS UNKNOWN AT THE TIME OF DEATH
     Route: 048
  7. COLCHICINE [Suspect]
     Dosage: ROUTE: INGESTION, ONGOING STATUS UNKNOWN AT THE TIME OF DEATH
     Route: 048

REACTIONS (3)
  - CARDIAC ARREST [None]
  - RESPIRATORY ARREST [None]
  - TOXICITY TO VARIOUS AGENTS [None]
